FAERS Safety Report 4745092-5 (Version None)
Quarter: 2005Q3

REPORT INFORMATION
  Report Type: 
  Country: None (occurrence: None)
  Receive Date: 20050815
  Receipt Date: 20050802
  Transmission Date: 20060218
  Serious: Yes (Hospitalization, Other)
  Sender: FDA-Public Use
  Company Number: NL-JNJFOC-20050605393

PATIENT
  Sex: Male
  Weight: 71 kg

DRUGS (12)
  1. DOXIL [Suspect]
     Indication: MULTIPLE MYELOMA
     Route: 042
  2. VELCADE [Suspect]
     Indication: MULTIPLE MYELOMA
     Route: 065
  3. VELCADE [Suspect]
     Route: 042
  4. ACENOCOUMAROL [Concomitant]
     Dosage: PRN
     Route: 048
  5. ASCORBIC ACID [Concomitant]
     Route: 048
  6. APD [Concomitant]
     Indication: MULTIPLE MYELOMA
     Dosage: QMO.
     Route: 042
  7. ZOFRAN [Concomitant]
     Dosage: PRN
     Route: 042
  8. COZAAR [Concomitant]
     Route: 048
  9. COZAAR [Concomitant]
     Indication: HYPERTENSION
     Dosage: 50/12.5MG DAILY.
     Route: 048
  10. COZAAR [Concomitant]
     Indication: HYPERTENSION
     Route: 048
  11. RYTHMOL [Concomitant]
     Indication: ATRIAL FIBRILLATION
     Route: 048
  12. XATROL XR [Concomitant]
     Route: 048

REACTIONS (4)
  - DIARRHOEA [None]
  - ILEUS [None]
  - PULMONARY EMBOLISM [None]
  - PYREXIA [None]
